FAERS Safety Report 4902134-1 (Version None)
Quarter: 2006Q1

REPORT INFORMATION
  Report Type: 
  Country: None (occurrence: None)
  Receive Date: 20060206
  Receipt Date: 20060125
  Transmission Date: 20060701
  Serious: Yes (Other)
  Sender: FDA-Public Use
  Company Number: US-JNJFOC-20060105370

PATIENT
  Age: 80 Year
  Sex: Female

DRUGS (3)
  1. INFLIXIMAB [Suspect]
     Dosage: INFUSION #3
     Route: 042
  2. INFLIXIMAB [Suspect]
     Dosage: INFUSION #3
     Route: 042
  3. INFLIXIMAB [Suspect]
     Indication: RHEUMATOID ARTHRITIS
     Dosage: INFUSION 1 AND 2 (DATES UNSPECIFIED)
     Route: 042

REACTIONS (1)
  - CUTANEOUS LUPUS ERYTHEMATOSUS [None]
